FAERS Safety Report 8667352 (Version 2)
Quarter: 2014Q3

REPORT INFORMATION
  Report Type: Spontaneous
  Country: BR (occurrence: BR)
  Receive Date: 20120717
  Receipt Date: 20140728
  Transmission Date: 20150326
  Serious: Yes (Other)
  Sender: FDA-Public Use
  Company Number: BR-RANBAXY-2012R5-57757

PATIENT
  Sex: Female

DRUGS (1)
  1. CEFUROXIME AXETIL. [Suspect]
     Active Substance: CEFUROXIME AXETIL
     Indication: NASOPHARYNGITIS
     Dosage: 500 MG, BID
     Route: 048
     Dates: start: 20120702

REACTIONS (3)
  - Back pain [Unknown]
  - Respiratory tract haemorrhage [Unknown]
  - Pain [Unknown]

NARRATIVE: CASE EVENT DATE: 20120702
